FAERS Safety Report 23302704 (Version 1)
Quarter: 2023Q4

REPORT INFORMATION
  Report Type: Spontaneous
  Country: US (occurrence: US)
  Receive Date: 20231215
  Receipt Date: 20231215
  Transmission Date: 20240110
  Serious: No
  Sender: FDA-Public Use
  Company Number: US-GSK-US2023170304

PATIENT
  Sex: Male
  Weight: 55.782 kg

DRUGS (4)
  1. TRELEGY ELLIPTA [Suspect]
     Active Substance: FLUTICASONE FUROATE\UMECLIDINIUM BROMIDE\VILANTEROL TRIFENATATE
     Indication: Emphysema
     Dosage: 1 DF, QD, TRELEGY ELLIPTA 100-62.5MCG
     Route: 048
  2. TAMSULOSIN [Suspect]
     Active Substance: TAMSULOSIN
     Indication: Bladder disorder
     Dosage: 1 DF, BID, 4MG
  3. TAMOXIFEN [Suspect]
     Active Substance: TAMOXIFEN
     Indication: Neoplasm malignant
     Dosage: 1 DF, QD, 20MG
     Route: 048
  4. SILODOSIN [Suspect]
     Active Substance: SILODOSIN
     Indication: Bladder disorder
     Dosage: 1 DF, QD, 8 MG
     Route: 048

REACTIONS (5)
  - Diarrhoea [Not Recovered/Not Resolved]
  - Weight decreased [Not Recovered/Not Resolved]
  - Condition aggravated [Not Recovered/Not Resolved]
  - Electrocardiogram abnormal [Unknown]
  - Eye disorder [Unknown]
